FAERS Safety Report 20630358 (Version 1)
Quarter: 2022Q1

REPORT INFORMATION
  Report Type: Spontaneous
  Country: US (occurrence: US)
  Receive Date: 20220324
  Receipt Date: 20220324
  Transmission Date: 20220423
  Serious: No
  Sender: FDA-Public Use
  Company Number: US-TEVA-2022-US-2015930

PATIENT
  Age: 56 Year
  Sex: Female

DRUGS (1)
  1. AUSTEDO [Suspect]
     Active Substance: DEUTETRABENAZINE
     Indication: Tardive dyskinesia
     Dosage: 9MG IN AM, 12 MG IN PM
     Route: 065
     Dates: start: 20201231, end: 20210118

REACTIONS (3)
  - Anxiety [Unknown]
  - Musculoskeletal stiffness [Unknown]
  - Muscle rigidity [Unknown]
